FAERS Safety Report 24559729 (Version 6)
Quarter: 2025Q1

REPORT INFORMATION
  Report Type: Spontaneous
  Country: US (occurrence: US)
  Receive Date: 20241029
  Receipt Date: 20250130
  Transmission Date: 20250408
  Serious: No
  Sender: BRISTOL-MYERS SQUIBB COMPANY
  Company Number: US-BRISTOL-MYERS SQUIBB COMPANY-2024-169513

PATIENT
  Age: 46 Year
  Sex: Male

DRUGS (3)
  1. ZEPOSIA [Suspect]
     Active Substance: OZANIMOD HYDROCHLORIDE
     Indication: Multiple sclerosis
     Route: 048
     Dates: start: 202410
  2. ZEPOSIA [Suspect]
     Active Substance: OZANIMOD HYDROCHLORIDE
     Route: 048
     Dates: start: 202410
  3. ZEPOSIA [Suspect]
     Active Substance: OZANIMOD HYDROCHLORIDE
     Dosage: ZEPOSIA (7 DAY STARTER PAK)
     Route: 048
     Dates: start: 202410

REACTIONS (6)
  - Fatigue [Unknown]
  - Decreased appetite [Unknown]
  - Rash pruritic [Unknown]
  - Asthenia [Unknown]
  - Heart rate decreased [Unknown]
  - Depression [Unknown]
